FAERS Safety Report 11743805 (Version 9)
Quarter: 2017Q1

REPORT INFORMATION
  Report Type: Spontaneous
  Country: US (occurrence: US)
  Receive Date: 20151116
  Receipt Date: 20170329
  Transmission Date: 20170428
  Serious: No
  Sender: FDA-Public Use
  Company Number: PHEH2015US023622

PATIENT
  Age: 20 Year
  Sex: Female
  Weight: 58.96 kg

DRUGS (5)
  1. ZOFRAN ODT [Suspect]
     Active Substance: ONDANSETRON HYDROCHLORIDE
     Dosage: 4 MG, UNK
     Route: 048
     Dates: start: 20140210, end: 20140210
  2. ZOFRAN ODT [Suspect]
     Active Substance: ONDANSETRON HYDROCHLORIDE
     Dosage: 4 MG, UNK
     Route: 048
     Dates: start: 20140614, end: 20140614
  3. ZOFRAN ODT [Suspect]
     Active Substance: ONDANSETRON HYDROCHLORIDE
     Indication: VOMITING IN PREGNANCY
     Dosage: 4 MG, UNK
     Route: 048
     Dates: start: 20131205, end: 20131205
  4. ONDANSETRON [Suspect]
     Active Substance: ONDANSETRON
     Indication: PRODUCT USED FOR UNKNOWN INDICATION
     Dosage: 4 MG, UNK
     Route: 048
     Dates: start: 20131205, end: 20140210
  5. ZOFRAN ODT [Suspect]
     Active Substance: ONDANSETRON HYDROCHLORIDE
     Dosage: 4 MG, Q6H
     Route: 048
     Dates: start: 20131209

REACTIONS (10)
  - Abdominal pain [Unknown]
  - Back pain [Unknown]
  - Haemorrhoids [Unknown]
  - Dizziness [Unknown]
  - Anxiety [Unknown]
  - Emotional distress [Unknown]
  - Pain [Unknown]
  - Upper respiratory tract infection [Unknown]
  - Maternal exposure during pregnancy [Unknown]
  - Product use issue [Unknown]

NARRATIVE: CASE EVENT DATE: 20140609
